FAERS Safety Report 24757215 (Version 3)
Quarter: 2024Q4

REPORT INFORMATION
  Report Type: Report from Study
  Country: US (occurrence: US)
  Receive Date: 20241220
  Receipt Date: 20241230
  Transmission Date: 20250115
  Serious: No
  Sender: NOVARTIS
  Company Number: US-002147023-NVSC2024US241738

PATIENT
  Sex: Male

DRUGS (1)
  1. COSENTYX [Suspect]
     Active Substance: SECUKINUMAB
     Indication: Product used for unknown indication
     Dosage: QMO (300MG/2ML, INJECTION)
     Route: 065
     Dates: start: 20240924

REACTIONS (3)
  - Incorrect dose administered [Unknown]
  - Product administration error [Unknown]
  - Accidental exposure to product [Unknown]
